FAERS Safety Report 4592437-5 (Version None)
Quarter: 2005Q1

REPORT INFORMATION
  Report Type: 
  Country: None (occurrence: None)
  Receive Date: 20050228
  Receipt Date: 20050127
  Transmission Date: 20050727
  Serious: Yes (Other)
  Sender: FDA-Public Use
  Company Number: US-BRISTOL-MYERS SQUIBB COMPANY-12840757

PATIENT

DRUGS (1)
  1. ABILIFY [Suspect]
     Route: 048
     Dates: start: 20041201

REACTIONS (1)
  - NEUROLEPTIC MALIGNANT SYNDROME [None]
